FAERS Safety Report 15131067 (Version 1)
Quarter: 2018Q3

REPORT INFORMATION
  Report Type: Spontaneous
  Country: US (occurrence: US)
  Receive Date: 20180711
  Receipt Date: 20180711
  Transmission Date: 20181010
  Serious: Yes (Hospitalization, Other)
  Sender: FDA-Public Use
  Company Number: US-PFIZER INC-2018268436

PATIENT
  Age: 65 Year
  Sex: Female
  Weight: 46.7 kg

DRUGS (2)
  1. IBRANCE [Suspect]
     Active Substance: PALBOCICLIB
     Indication: BREAST CANCER METASTATIC
  2. IBRANCE [Suspect]
     Active Substance: PALBOCICLIB
     Indication: BREAST CANCER
     Dosage: 75 MG, CYCLIC (DAYS 1?14 OF 21 DAYS)
     Route: 048
     Dates: start: 201603

REACTIONS (2)
  - Ulcer haemorrhage [Unknown]
  - Anaemia [Unknown]
